FAERS Safety Report 6506877-8 (Version None)
Quarter: 2009Q4

REPORT INFORMATION
  Report Type: 
  Country: None (occurrence: None)
  Receive Date: 20091221
  Receipt Date: 20091209
  Transmission Date: 20100525
  Serious: Yes (Death, Hospitalization)
  Sender: FDA-Public Use
  Company Number: KR-PFIZER INC-2009233202

PATIENT
  Age: 53 Year

DRUGS (26)
  1. VORICONAZOLE [Suspect]
     Indication: ASPERGILLOSIS
     Dosage: 324 MG, 2X/DAY
     Dates: start: 20081121, end: 20081121
  2. VORICONAZOLE [Suspect]
     Dosage: 216 MG, 2X/DAY
     Dates: start: 20081122, end: 20081122
  3. VORICONAZOLE [Suspect]
     Dosage: 218.6 MG, 2X/DAY
     Dates: start: 20081123, end: 20081123
  4. VORICONAZOLE [Suspect]
     Dosage: 217.8 MG, 2X/DAY
     Dates: start: 20081124, end: 20081124
  5. VORICONAZOLE [Suspect]
     Dosage: 216.2 MG, 2X/DAY
     Dates: start: 20081125, end: 20081125
  6. VORICONAZOLE [Suspect]
     Dosage: 203.4 MG, 2X/DAY
     Dates: start: 20081126, end: 20081126
  7. VORICONAZOLE [Suspect]
     Dosage: 203 MG, 2X/DAY
     Dates: start: 20081127, end: 20081127
  8. VORICONAZOLE [Suspect]
     Dosage: 204.6 MG, 2X/DAY
     Dates: start: 20081128, end: 20081128
  9. VORICONAZOLE [Suspect]
     Dosage: 198 MG, 2X/DAY
     Dates: start: 20081129, end: 20081129
  10. VORICONAZOLE [Suspect]
     Dosage: 200.2 MG, 2X/DAY
     Dates: start: 20081130, end: 20081130
  11. VORICONAZOLE [Suspect]
     Dosage: 200.2 MG, 2X/DAY
     Dates: start: 20081201, end: 20081201
  12. VORICONAZOLE [Suspect]
     Dosage: 197 MG, 2X/DAY
     Dates: start: 20081202, end: 20081202
  13. VORICONAZOLE [Suspect]
     Dosage: 194.2 MG, 2X/DAY
     Dates: start: 20081203, end: 20081203
  14. VORICONAZOLE [Suspect]
     Dosage: 195.6 MG, 2X/DAY
     Dates: start: 20081204, end: 20081204
  15. VORICONAZOLE [Suspect]
     Dosage: 195 MG, 2X/DAY
     Dates: start: 20081205, end: 20081205
  16. VORICONAZOLE [Suspect]
     Dosage: 194.4 MG, 2X/DAY
     Dates: start: 20081206, end: 20081206
  17. VORICONAZOLE [Suspect]
     Dosage: 194.4 MG, 2X/DAY
     Dates: start: 20081207, end: 20081207
  18. VORICONAZOLE [Suspect]
     Dosage: 198.6 MG, 2X/DAY
     Dates: start: 20081208, end: 20081208
  19. VORICONAZOLE [Suspect]
     Dosage: 197.6 MG, 2X/DAY
     Dates: start: 20081209, end: 20081209
  20. VORICONAZOLE [Suspect]
     Dosage: 192.2 MG, 2X/DAY
     Dates: start: 20081210, end: 20081210
  21. VORICONAZOLE [Suspect]
     Dosage: 198.4 MG, 2X/DAY
     Dates: start: 20081211, end: 20081211
  22. IMIPENEM AND CILASTATIN SODIUM [Concomitant]
     Route: 042
     Dates: start: 20081121, end: 20081218
  23. TRAMADOL [Concomitant]
     Route: 042
     Dates: start: 20081101, end: 20081218
  24. TRAMADOL HYDROCHLORIDE AND ACETAMINOPHEN [Concomitant]
     Route: 048
     Dates: start: 20081101, end: 20081211
  25. SUCRALFATE [Concomitant]
     Route: 048
     Dates: start: 20081124, end: 20081125
  26. VITAMINS [Concomitant]
     Route: 048
     Dates: start: 20081110, end: 20081218

REACTIONS (2)
  - NEPHROPATHY TOXIC [None]
  - SEPTIC SHOCK [None]
